FAERS Safety Report 9600526 (Version 2)
Quarter: 2013Q4

REPORT INFORMATION
  Report Type: Spontaneous
  Country: US (occurrence: US)
  Receive Date: 20131004
  Receipt Date: 20131004
  Transmission Date: 20140711
  Serious: No
  Sender: FDA-Public Use
  Company Number: US-AMGEN-USASP2013028736

PATIENT
  Age: 42 Year
  Sex: Female
  Weight: 99.77 kg

DRUGS (3)
  1. ENBREL [Suspect]
     Indication: PRODUCT USED FOR UNKNOWN INDICATION
     Dosage: 50 MG, 2 TIMES/WK, FOR 3 MONTHS
     Route: 058
  2. LISINOPRIL [Concomitant]
     Dosage: 5 MG, UNK
     Route: 048
  3. VITAMIN D                          /00107901/ [Concomitant]
     Dosage: 400 UNIT, UNK
     Route: 048

REACTIONS (2)
  - Headache [Unknown]
  - Muscular weakness [Unknown]
